FAERS Safety Report 20067322 (Version 3)
Quarter: 2021Q4

REPORT INFORMATION
  Report Type: Report from Study
  Country: CO (occurrence: CO)
  Receive Date: 20211115
  Receipt Date: 20211224
  Transmission Date: 20220303
  Serious: Yes (Other)
  Sender: FDA-Public Use
  Company Number: CO-ABBVIE-21K-036-4161549-00

PATIENT
  Sex: Female
  Weight: 57 kg

DRUGS (6)
  1. HUMIRA [Suspect]
     Active Substance: ADALIMUMAB
     Indication: Colitis ulcerative
     Route: 058
     Dates: start: 20170427
  2. HUMIRA [Suspect]
     Active Substance: ADALIMUMAB
     Indication: Colitis ulcerative
     Route: 058
  3. LIDOCAINE HYDROCORTISONE [Concomitant]
     Indication: Colitis ulcerative
     Route: 054
     Dates: start: 2017
  4. MESALAMINE [Concomitant]
     Active Substance: MESALAMINE
     Indication: Colitis ulcerative
     Dosage: 1 SACHET AFTER EACH MEAL
     Route: 048
     Dates: start: 2017
  5. AZATHIOPRINE [Concomitant]
     Active Substance: AZATHIOPRINE
     Indication: Colitis ulcerative
     Route: 048
     Dates: start: 2017
  6. SCOPOLAMINE [Concomitant]
     Active Substance: SCOPOLAMINE
     Indication: Colitis ulcerative
     Route: 048
     Dates: start: 2017

REACTIONS (12)
  - Depression [Not Recovered/Not Resolved]
  - Rectal haemorrhage [Recovering/Resolving]
  - Anal incontinence [Not Recovered/Not Resolved]
  - Menstruation irregular [Not Recovered/Not Resolved]
  - Faeces hard [Recovering/Resolving]
  - Helplessness [Unknown]
  - General physical health deterioration [Not Recovered/Not Resolved]
  - Menstrual disorder [Not Recovered/Not Resolved]
  - Discomfort [Not Recovered/Not Resolved]
  - Pain [Not Recovered/Not Resolved]
  - Diarrhoea [Not Recovered/Not Resolved]
  - Abdominal pain [Recovering/Resolving]

NARRATIVE: CASE EVENT DATE: 20210101
